FAERS Safety Report 15105035 (Version 1)
Quarter: 2018Q3

REPORT INFORMATION
  Report Type: Spontaneous
  Country: CL (occurrence: CL)
  Receive Date: 20180703
  Receipt Date: 20180703
  Transmission Date: 20181010
  Serious: Yes (Hospitalization, Other)
  Sender: FDA-Public Use
  Company Number: CL-ASTRAZENECA-2018SE83283

PATIENT
  Age: 25286 Day
  Sex: Male

DRUGS (1)
  1. VANNAIR [Suspect]
     Active Substance: BUDESONIDE\FORMOTEROL FUMARATE DIHYDRATE
     Dosage: 160, UNKNOWN UNKNOWN
     Route: 055
     Dates: start: 20140625

REACTIONS (2)
  - Aortic valve incompetence [Unknown]
  - Renal failure [Unknown]

NARRATIVE: CASE EVENT DATE: 20180524
